FAERS Safety Report 6701209-4 (Version None)
Quarter: 2010Q2

REPORT INFORMATION
  Report Type: 
  Country: None (occurrence: None)
  Receive Date: 20100427
  Receipt Date: 20100412
  Transmission Date: 20101027
  Serious: Yes (Other)
  Sender: FDA-Public Use
  Company Number: 08-AUR-05322

PATIENT
  Age: 26 Year
  Sex: Female
  Weight: 58 kg

DRUGS (1)
  1. SERTRALINE HCL [Suspect]
     Indication: DEPRESSION
     Dosage: 50MG, DAILY, ORAL
     Route: 048
     Dates: start: 20080909, end: 20081003

REACTIONS (3)
  - ASTHMA [None]
  - DRUG HYPERSENSITIVITY [None]
  - JOINT SWELLING [None]
